FAERS Safety Report 10700988 (Version 1)
Quarter: 2015Q1

REPORT INFORMATION
  Report Type: Report from Study
  Country: NL (occurrence: NL)
  Receive Date: 20150109
  Receipt Date: 20150109
  Transmission Date: 20150721
  Serious: Yes (Hospitalization)
  Sender: FDA-Public Use
  Company Number: NL-IPSEN BIOPHARMACEUTICALS, INC.-2015-0143

PATIENT
  Age: 60 Year
  Sex: Female
  Weight: 70.4 kg

DRUGS (5)
  1. OSCAL [Concomitant]
     Active Substance: CALCIUM CARBONATE
     Indication: PRODUCT USED FOR UNKNOWN INDICATION
     Route: 048
  2. LANREOTIDE [Suspect]
     Active Substance: LANREOTIDE
     Indication: PRODUCT USE ISSUE
  3. LANREOTIDE [Suspect]
     Active Substance: LANREOTIDE
     Indication: CONGENITAL CYSTIC KIDNEY DISEASE
     Dosage: 120MG
     Route: 058
  4. SELOKEN [Concomitant]
     Active Substance: METOPROLOL
     Indication: PRODUCT USED FOR UNKNOWN INDICATION
     Route: 048
  5. CIPROXIN [Concomitant]
     Active Substance: CIPROFLOXACIN
     Indication: PRODUCT USED FOR UNKNOWN INDICATION
     Route: 048
     Dates: start: 20141215, end: 20141227

REACTIONS (2)
  - Off label use [None]
  - Pyelonephritis [Recovered/Resolved]

NARRATIVE: CASE EVENT DATE: 20141221
